FAERS Safety Report 12427265 (Version 2)
Quarter: 2016Q2

REPORT INFORMATION
  Report Type: Spontaneous
  Country: US (occurrence: US)
  Receive Date: 20160602
  Receipt Date: 20160624
  Transmission Date: 20160815
  Serious: Yes (Hospitalization, Other)
  Sender: FDA-Public Use
  Company Number: US-GILEAD-2016-0216038

PATIENT
  Age: 61 Year
  Sex: Male
  Weight: 92.63 kg

DRUGS (2)
  1. PLAVIX [Concomitant]
     Active Substance: CLOPIDOGREL BISULFATE
  2. HARVONI [Suspect]
     Active Substance: LEDIPASVIR\SOFOSBUVIR
     Indication: HEPATITIS C
     Dosage: 1 DF, QD
     Route: 048

REACTIONS (3)
  - Haemoglobin decreased [Unknown]
  - Acute myocardial infarction [Recovered/Resolved]
  - Anaemia [Recovered/Resolved]
